FAERS Safety Report 8512487 (Version 3)
Quarter: 2013Q3

REPORT INFORMATION
  Report Type: Spontaneous
  Country: US (occurrence: US)
  Receive Date: 20120413
  Receipt Date: 20130702
  Transmission Date: 20140515
  Serious: No
  Sender: FDA-Public Use
  Company Number: US-ASTRAZENECA-2011SE41281

PATIENT
  Age: 84 Year
  Sex: Female

DRUGS (2)
  1. NEXIUM [Suspect]
     Route: 048
  2. TUMS [Concomitant]

REACTIONS (10)
  - Hernia [Unknown]
  - Dyspepsia [Unknown]
  - Back injury [Unknown]
  - Fall [Unknown]
  - Staphylococcal infection [Unknown]
  - Diverticulitis [Unknown]
  - Hearing impaired [Unknown]
  - Malaise [Unknown]
  - Malaise [Unknown]
  - Drug dose omission [Unknown]
